FAERS Safety Report 19912730 (Version 1)
Quarter: 2021Q4

REPORT INFORMATION
  Report Type: Spontaneous
  Country: US (occurrence: US)
  Receive Date: 20211004
  Receipt Date: 20211004
  Transmission Date: 20220303
  Serious: Yes (Other)
  Sender: FDA-Public Use
  Company Number: None

PATIENT

DRUGS (1)
  1. COPPERTONE SPORT SUNSCREEN SPF 100PLUS [Suspect]
     Active Substance: AVOBENZONE\HOMOSALATE\OCTINOXATE\OCTISALATE\OCTOCRYLENE\OXYBENZONE
     Dosage: ?          OTHER STRENGTH:SPRAY ON;OTHER ROUTE:AEROSOL SPRAY
     Dates: start: 20210901, end: 20210901

REACTIONS (2)
  - Application site pain [None]
  - Application site pain [None]

NARRATIVE: CASE EVENT DATE: 20210901
